FAERS Safety Report 18355011 (Version 1)
Quarter: 2020Q4

REPORT INFORMATION
  Report Type: Spontaneous
  Country: US (occurrence: US)
  Receive Date: 20201007
  Receipt Date: 20201007
  Transmission Date: 20210114
  Serious: Yes (Life-Threatening)
  Sender: FDA-Public Use
  Company Number: None

PATIENT
  Age: 63 Year
  Sex: Male
  Weight: 63.5 kg

DRUGS (1)
  1. DEFINITY [Suspect]
     Active Substance: PERFLUTREN
     Indication: ULTRASOUND SCAN
     Dosage: ?          OTHER FREQUENCY:ONCE;?
     Route: 042
     Dates: start: 20201006, end: 20201006

REACTIONS (5)
  - Cardiac procedure complication [None]
  - Dyspnoea [None]
  - Pulseless electrical activity [None]
  - Bradycardia [None]
  - Cardio-respiratory arrest [None]

NARRATIVE: CASE EVENT DATE: 20201006
